FAERS Safety Report 8495160 (Version 2)
Quarter: 2013Q1

REPORT INFORMATION
  Report Type: Spontaneous
  Country: US (occurrence: None)
  Receive Date: 20120330
  Receipt Date: 20121106
  Transmission Date: 20140127
  Serious: Yes (Other)
  Sender: FDA-Public Use
  Company Number: 2012-1308

PATIENT
  Age: 79 Year
  Sex: Female
  Weight: 47 kg

DRUGS (19)
  1. SOMATULINE DEPOT [Suspect]
     Indication: ACROMEGALY
     Dosage: 120 MG, ONCE EVERY 28 DAYS (120 MG, 1 IN 28 D), SUBCUTANEOUS
     Dates: start: 20110901
  2. NIFEDICAL XL (NIFEDIPINE) [Concomitant]
  3. LASIX [Concomitant]
  4. DIOVAN [Concomitant]
  5. PLAVIX [Concomitant]
  6. TOPROL XL [Concomitant]
  7. HYDRALAZINE HYDROCHLORIDE [Concomitant]
  8. SINGULAIR [Concomitant]
  9. PROAIR HFA (SALBUTAMOL SULFATE) [Concomitant]
  10. FLOVENT HSA (FLUTICASONE PROPIONATE) [Concomitant]
  11. QVAR [Concomitant]
  12. LANTUS [Concomitant]
  13. HUMALOG [Concomitant]
  14. MELATONIN (MELATONIN) [Concomitant]
  15. TYLENOL (PARACETAMOL) [Concomitant]
  16. CALCIUM WITH VITAMIN D (CALCIUM WITH VITAMIN D) [Concomitant]
  17. FERROUS SULFATE [Concomitant]
  18. CALCITRIOL [Concomitant]
  19. VITAMINS [Concomitant]

REACTIONS (2)
  - Loss of consciousness [None]
  - Blood glucose decreased [None]
